FAERS Safety Report 4842348-2 (Version None)
Quarter: 2005Q4

REPORT INFORMATION
  Report Type: 
  Country: None (occurrence: None)
  Receive Date: 20051128
  Receipt Date: 20051123
  Transmission Date: 20060501
  Serious: Yes (Hospitalization)
  Sender: FDA-Public Use
  Company Number: 2005-US-01151

PATIENT
  Age: 52 Year
  Sex: Female

DRUGS (1)
  1. CLOZAPINE [Suspect]
     Indication: SCHIZOPHRENIA
     Dosage: 650 MG, QD, ORAL
     Route: 048
     Dates: start: 19990503

REACTIONS (2)
  - ARTHRITIS INFECTIVE [None]
  - KNEE ARTHROPLASTY [None]
